FAERS Safety Report 19714025 (Version 5)
Quarter: 2021Q4

REPORT INFORMATION
  Report Type: Spontaneous
  Country: JP (occurrence: JP)
  Receive Date: 20210818
  Receipt Date: 20211210
  Transmission Date: 20220303
  Serious: Yes (Hospitalization, Other)
  Sender: FDA-Public Use
  Company Number: JP-BRISTOL-MYERS SQUIBB COMPANY-BMS-2021-080910

PATIENT
  Age: 70 Year
  Sex: Male
  Weight: 79.5 kg

DRUGS (6)
  1. YERVOY [Suspect]
     Active Substance: IPILIMUMAB
     Indication: Non-small cell lung cancer recurrent
     Dosage: 1 MILLIGRAM/KILOGRAM
     Route: 041
     Dates: start: 20210714
  2. YERVOY [Suspect]
     Active Substance: IPILIMUMAB
     Dosage: 60 MILLIGRAM
     Route: 041
     Dates: start: 20210714
  3. OPDIVO [Suspect]
     Active Substance: NIVOLUMAB
     Indication: Non-small cell lung cancer recurrent
     Dosage: 360 MILLIGRAM
     Route: 041
     Dates: start: 20210714
  4. CARBOPLATIN [Suspect]
     Active Substance: CARBOPLATIN
     Indication: Non-small cell lung cancer recurrent
     Dosage: 420 MILLIGRAM
     Route: 041
     Dates: start: 20210714
  5. PACLITAXEL [Suspect]
     Active Substance: PACLITAXEL
     Indication: Non-small cell lung cancer recurrent
     Dosage: 390 MILLIGRAM
     Route: 041
     Dates: start: 20210714
  6. BISOPROLOL [Concomitant]
     Active Substance: BISOPROLOL
     Indication: Cardiac failure chronic
     Dosage: 0.625 MILLIGRAM
     Route: 065

REACTIONS (8)
  - Nephritis [Recovering/Resolving]
  - Rash maculo-papular [Recovered/Resolved]
  - Interstitial lung disease [Recovered/Resolved]
  - Febrile neutropenia [Recovered/Resolved]
  - Bradycardia [Unknown]
  - Sleep apnoea syndrome [Unknown]
  - Decreased appetite [Unknown]
  - Dry skin [Unknown]

NARRATIVE: CASE EVENT DATE: 20210717
